FAERS Safety Report 17669344 (Version 1)
Quarter: 2020Q2

REPORT INFORMATION
  Report Type: Spontaneous
  Country: US (occurrence: US)
  Receive Date: 20200414
  Receipt Date: 20200414
  Transmission Date: 20200713
  Serious: Yes (Death)
  Sender: FDA-Public Use
  Company Number: None

PATIENT
  Age: 15 Year
  Sex: Male

DRUGS (1)
  1. ETOPOSIDE CAP 50MG [Suspect]
     Active Substance: ETOPOSIDE
     Indication: BRAIN NEOPLASM MALIGNANT
     Dosage: OTHER FREQUENCY:OTHER;?
     Route: 048
     Dates: start: 202002, end: 20200414

REACTIONS (1)
  - Death [None]

NARRATIVE: CASE EVENT DATE: 20200414
